FAERS Safety Report 24955304 (Version 1)
Quarter: 2025Q1

REPORT INFORMATION
  Report Type: Spontaneous
  Country: US (occurrence: US)
  Receive Date: 20250211
  Receipt Date: 20250211
  Transmission Date: 20250408
  Serious: No
  Sender: VERICEL
  Company Number: US-VERICEL-US-VCEL-24-000165

PATIENT
  Sex: Female

DRUGS (1)
  1. MACI [Suspect]
     Active Substance: AUTOLOGOUS CULTURED CHONDROCYTES\SUS SCROFA COLLAGEN
     Indication: Chondropathy
     Route: 050
     Dates: start: 20230323, end: 20230323

REACTIONS (2)
  - Fall [Unknown]
  - Tissue injury [Unknown]
